FAERS Safety Report 5772940-2 (Version None)
Quarter: 2008Q2

REPORT INFORMATION
  Report Type: 
  Country: None (occurrence: None)
  Receive Date: 20080613
  Receipt Date: 20080603
  Transmission Date: 20081010
  Serious: Yes (Other)
  Sender: FDA-Public Use
  Company Number: IE-PFIZER INC-2008046984

PATIENT
  Age: 31 Year
  Sex: Female

DRUGS (5)
  1. CHANTIX [Suspect]
     Indication: SMOKING CESSATION THERAPY
     Route: 048
  2. AUGMENTIN '125' [Concomitant]
  3. SERETIDE [Concomitant]
  4. KLACID [Concomitant]
  5. ALUPENT [Concomitant]

REACTIONS (7)
  - ANXIETY [None]
  - APATHY [None]
  - DEPRESSION [None]
  - DIZZINESS [None]
  - PARANOIA [None]
  - RESTLESSNESS [None]
  - TREMOR [None]
